FAERS Safety Report 5073077-0 (Version None)
Quarter: 2006Q3

REPORT INFORMATION
  Report Type: 
  Country: None (occurrence: None)
  Receive Date: 20060802
  Receipt Date: 20060717
  Transmission Date: 20061208
  Serious: Yes (Death, Hospitalization)
  Sender: FDA-Public Use
  Company Number: 163-21880-06040298

PATIENT
  Age: 60 Year
  Sex: Male

DRUGS (2)
  1. REVLIMID [Suspect]
     Indication: MULTIPLE MYELOMA
     Dosage: 1 IN 1 D ORAL
     Route: 048
     Dates: start: 20060317
  2. DECADRON [Concomitant]

REACTIONS (4)
  - CHILLS [None]
  - DRUG DOSE OMISSION [None]
  - HYPOTENSION [None]
  - PYREXIA [None]
